FAERS Safety Report 6463563-0 (Version None)
Quarter: 2009Q4

REPORT INFORMATION
  Report Type: 
  Country: None (occurrence: None)
  Receive Date: 20091123
  Receipt Date: 20091117
  Transmission Date: 20100525
  Serious: Yes (Hospitalization, Congenital Anomaly, Other)
  Sender: FDA-Public Use
  Company Number: 2009SP021569

PATIENT
  Sex: Female
  Weight: 1.21 kg

DRUGS (12)
  1. PEG-INTRON [Suspect]
     Indication: DRUG EXPOSURE DURING PREGNANCY
     Dates: start: 20080910, end: 20090527
  2. RIBAVIRIN [Suspect]
     Indication: DRUG EXPOSURE DURING PREGNANCY
     Dates: start: 20080910, end: 20090601
  3. LOXOPROFEN (LOXOPROFEN) [Suspect]
     Indication: DRUG EXPOSURE DURING PREGNANCY
     Dates: start: 20080911, end: 20090603
  4. LANSOPRAZOLE [Suspect]
     Indication: DRUG EXPOSURE DURING PREGNANCY
     Dates: start: 20080919, end: 20090617
  5. ETIZOLAM (ETIZOLAM) [Suspect]
     Indication: DRUG EXPOSURE DURING PREGNANCY
     Dates: start: 20080916, end: 20090531
  6. DOMPERIDONE (DOMPERIDONE) [Suspect]
     Indication: DRUG EXPOSURE DURING PREGNANCY
     Dates: start: 20081029, end: 20090110
  7. HIRDOID SOFT (HEPARINODI) (HEPARINOID) [Suspect]
     Indication: DRUG EXPOSURE DURING PREGNANCY
     Dates: start: 20081105, end: 20081224
  8. RESTAMIN (DIPHENHYDRAMINE) [Suspect]
     Indication: PREGNANCY
     Dates: start: 20080913, end: 20090311
  9. EBASTEL (CON.) [Concomitant]
  10. TOWATHIEM (SALICYLAMIDE, ACETAMINOPHEN, ANHYDROUS CAFFEINE, PROMETHAZI [Concomitant]
  11. MUCOSAL (CON.) [Concomitant]
  12. NEODAY (CON.) [Concomitant]

REACTIONS (7)
  - CAESAREAN SECTION [None]
  - CEREBRAL VENTRICLE DILATATION [None]
  - HYDROCEPHALUS [None]
  - MENINGOCELE [None]
  - MENINGOMYELOCELE [None]
  - PATERNAL DRUGS AFFECTING FOETUS [None]
  - SMALL FOR DATES BABY [None]
